FAERS Safety Report 5278831-8 (Version None)
Quarter: 2007Q1

REPORT INFORMATION
  Report Type: 
  Country: None (occurrence: None)
  Receive Date: 20070328
  Receipt Date: 20070323
  Transmission Date: 20070707
  Serious: Yes (Life-Threatening)
  Sender: FDA-Public Use
  Company Number: FR-JNJFOC-20070305576

PATIENT
  Sex: Male
  Weight: 60 kg

DRUGS (8)
  1. PREZISTA [Suspect]
     Route: 048
  2. PREZISTA [Suspect]
     Indication: HIV INFECTION
     Route: 048
  3. NORVIR [Suspect]
     Indication: HIV INFECTION
  4. VIRAMUNE [Concomitant]
     Indication: HIV INFECTION
     Route: 048
  5. EPIVIR [Concomitant]
     Indication: HIV INFECTION
     Route: 048
  6. DIFFU-K [Concomitant]
     Route: 048
  7. PROZAC [Concomitant]
     Indication: DEPRESSION
     Route: 048
  8. BACTRIM [Concomitant]
     Indication: PROPHYLAXIS
     Route: 048

REACTIONS (2)
  - CONFUSIONAL STATE [None]
  - SUICIDAL IDEATION [None]
